FAERS Safety Report 17801899 (Version 1)
Quarter: 2020Q2

REPORT INFORMATION
  Report Type: Spontaneous
  Country: US (occurrence: US)
  Receive Date: 20200518
  Receipt Date: 20200518
  Transmission Date: 20200714
  Serious: No
  Sender: FDA-Public Use
  Company Number: None

PATIENT
  Age: 52 Year
  Sex: Male
  Weight: 95 kg

DRUGS (3)
  1. TOCILIZUMAB 760MG [Concomitant]
     Dates: start: 20200510, end: 20200510
  2. REMDESIVIR. [Suspect]
     Active Substance: REMDESIVIR
     Route: 040
     Dates: start: 20200513, end: 20200518
  3. CONVALESCENT SERUM [Concomitant]
     Dates: start: 20200511, end: 20200511

REACTIONS (2)
  - Product administration error [None]
  - Product dose omission [None]

NARRATIVE: CASE EVENT DATE: 20200514
